FAERS Safety Report 4882192-3 (Version None)
Quarter: 2006Q1

REPORT INFORMATION
  Report Type: 
  Country: None (occurrence: None)
  Receive Date: 20060117
  Receipt Date: 20051017
  Transmission Date: 20060701
  Serious: Yes (Hospitalization, Disabling)
  Sender: FDA-Public Use
  Company Number: US-MERCK-0510USA07657

PATIENT
  Age: 40 Year
  Sex: Male
  Weight: 85 kg

DRUGS (5)
  1. VIOXX [Suspect]
     Indication: ARTHRALGIA
     Route: 048
     Dates: start: 20001201, end: 20010701
  2. VIOXX [Suspect]
     Indication: JOINT SWELLING
     Route: 048
     Dates: start: 20001201, end: 20010701
  3. HYDROCODONE BITARTRATE [Concomitant]
     Route: 065
  4. LOVENOX [Concomitant]
     Route: 065
  5. WARFARIN [Concomitant]
     Route: 065

REACTIONS (9)
  - BLOOD CHOLESTEROL INCREASED [None]
  - BLOOD TRIGLYCERIDES INCREASED [None]
  - CEREBROVASCULAR ACCIDENT [None]
  - COMPLEX REGIONAL PAIN SYNDROME [None]
  - DEPRESSION [None]
  - PANIC DISORDER [None]
  - POST-TRAUMATIC STRESS DISORDER [None]
  - SUBCLAVIAN VEIN THROMBOSIS [None]
  - THROMBOSIS [None]
